FAERS Safety Report 6497698-3 (Version None)
Quarter: 2009Q4

REPORT INFORMATION
  Report Type: 
  Country: None (occurrence: None)
  Receive Date: 20091215
  Receipt Date: 20091204
  Transmission Date: 20100525
  Serious: Yes (Other)
  Sender: FDA-Public Use
  Company Number: US-JNJFOC-20091202227

PATIENT
  Age: 36 Year
  Sex: Female

DRUGS (3)
  1. REMICADE [Suspect]
     Indication: PSORIASIS
     Dosage: ON DRUG 2 YEARS
     Route: 042
  2. METHOTREXATE [Concomitant]
  3. CYCLOSPORINE [Concomitant]

REACTIONS (2)
  - EYE DISORDER [None]
  - SICCA SYNDROME [None]
